FAERS Safety Report 18814184 (Version 2)
Quarter: 2021Q1

REPORT INFORMATION
  Report Type: Report from Study
  Country: JP (occurrence: JP)
  Receive Date: 20210201
  Receipt Date: 20210204
  Transmission Date: 20210419
  Serious: Yes (Life-Threatening, Disabling, Other)
  Sender: FDA-Public Use
  Company Number: JP-AUROBINDO-AUR-APL-2020-055133

PATIENT
  Age: 86 Year
  Sex: Male
  Weight: 51 kg

DRUGS (5)
  1. FOLOTYN [Suspect]
     Active Substance: PRALATREXATE
     Dosage: 30 MILLIGRAM/SQ. METER
     Route: 042
     Dates: start: 20200831
  2. FOLIC ACID. [Concomitant]
     Active Substance: FOLIC ACID
     Indication: PROPHYLAXIS
     Dosage: UNK
     Route: 048
     Dates: start: 20200811
  3. FOLOTYN [Suspect]
     Active Substance: PRALATREXATE
     Indication: ANGIOIMMUNOBLASTIC T-CELL LYMPHOMA STAGE IV
     Dosage: 30 MILLIGRAM/SQ. METER
     Route: 042
     Dates: start: 20200817
  4. FOLOTYN [Suspect]
     Active Substance: PRALATREXATE
     Dosage: 30 MILLIGRAM/SQ. METER
     Route: 042
     Dates: start: 20200824
  5. VITAMIN B12 [Concomitant]
     Active Substance: CYANOCOBALAMIN
     Indication: PROPHYLAXIS
     Dosage: UNK
     Route: 030
     Dates: start: 20200811

REACTIONS (3)
  - Neutropenia [Recovered/Resolved]
  - Febrile neutropenia [Recovered/Resolved]
  - Stomatitis [Recovered/Resolved]

NARRATIVE: CASE EVENT DATE: 20200828
